FAERS Safety Report 8758106 (Version 2)
Quarter: 2012Q4

REPORT INFORMATION
  Report Type: Spontaneous
  Country: NL (occurrence: None)
  Receive Date: 20120813
  Receipt Date: 20120905
  Transmission Date: 20130627
  Serious: Yes (Hospitalization)
  Sender: FDA-Public Use
  Company Number: 2012-3526

PATIENT
  Age: 61 Year
  Sex: Male

DRUGS (1)
  1. SOMATULINE DEPOT [Suspect]
     Indication: DRUG USE FOR UNKNOWN INDICATION
     Dosage: 1 in 28 D
     Route: 058
     Dates: start: 20101014

REACTIONS (1)
  - Nephrolithiasis [None]
